FAERS Safety Report 5760320-5 (Version None)
Quarter: 2008Q2

REPORT INFORMATION
  Report Type: 
  Country: None (occurrence: None)
  Receive Date: 20080605
  Receipt Date: 20070312
  Transmission Date: 20081010
  Serious: Yes (Other)
  Sender: FDA-Public Use
  Company Number: IE-AMGEN-UK284451

PATIENT
  Sex: Male

DRUGS (7)
  1. NEULASTA [Suspect]
     Indication: CHEMOTHERAPY
     Route: 065
  2. NEUPOGEN [Suspect]
     Indication: CHEMOTHERAPY
     Route: 065
  3. RITUXIMAB [Concomitant]
     Route: 065
  4. CYCLOPHOSPHAMIDE [Concomitant]
     Route: 065
  5. DOXORUBICIN HYDROCHLORIDE [Concomitant]
     Route: 065
  6. VINCRISTINE [Concomitant]
     Route: 065
  7. PREDNISOLONE [Concomitant]
     Route: 065

REACTIONS (1)
  - THERAPEUTIC RESPONSE DELAYED [None]
